FAERS Safety Report 7233004-4 (Version None)
Quarter: 2011Q1

REPORT INFORMATION
  Report Type: 
  Country: None (occurrence: None)
  Receive Date: 20110106
  Receipt Date: 20101223
  Transmission Date: 20110831
  Serious: Yes (Other)
  Sender: FDA-Public Use
  Company Number: GB-1183309

PATIENT
  Age: 60 Year
  Sex: Male

DRUGS (5)
  1. NEVANAC [Suspect]
     Dosage: QID [2] QID OPHTHALMIC
     Route: 047
     Dates: start: 20100210, end: 20100212
  2. MAXIDES OPHTHALMIC (DEXAMETHASONE) 0.1 % OPHTHALMIC SUSPENSION EYE DRO [Suspect]
     Dosage: QID OPHTHALMIC
     Route: 047
     Dates: start: 20100210, end: 20100310
  3. EXOCIN (OFLOXACIN) [Concomitant]
  4. AZOPT [Concomitant]
  5. TIMOLOL MALEATE [Concomitant]

REACTIONS (4)
  - CORNEAL EPITHELIUM DEFECT [None]
  - OCULAR HYPERAEMIA [None]
  - EYE PAIN [None]
  - VISUAL ACUITY REDUCED [None]
